FAERS Safety Report 20566066 (Version 7)
Quarter: 2025Q2

REPORT INFORMATION
  Report Type: Spontaneous
  Country: BE (occurrence: BE)
  Receive Date: 20220308
  Receipt Date: 20250429
  Transmission Date: 20250717
  Serious: Yes (Other)
  Sender: TAKEDA
  Company Number: BE-TAKEDA-2020TUS056554

PATIENT
  Sex: Female

DRUGS (3)
  1. ENTYVIO [Suspect]
     Active Substance: VEDOLIZUMAB
     Indication: Colitis ulcerative
  2. ENTYVIO [Suspect]
     Active Substance: VEDOLIZUMAB
     Dosage: 300 MILLIGRAM, Q4WEEKS
  3. ENTYVIO [Suspect]
     Active Substance: VEDOLIZUMAB

REACTIONS (3)
  - Haematochezia [Unknown]
  - Defaecation urgency [Unknown]
  - Therapeutic reaction time decreased [Unknown]
